FAERS Safety Report 9808684 (Version 2)
Quarter: 2014Q1

REPORT INFORMATION
  Report Type: Report from Study
  Country: AU (occurrence: AU)
  Receive Date: 20140110
  Receipt Date: 20140110
  Transmission Date: 20141002
  Serious: Yes (Hospitalization)
  Sender: FDA-Public Use
  Company Number: AU-BRISTOL-MYERS SQUIBB COMPANY-19893056

PATIENT
  Age: 73 Year
  Sex: Female

DRUGS (6)
  1. PREDNISONE [Concomitant]
  2. METHOTREXATE [Concomitant]
  3. FOLIC ACID [Concomitant]
  4. OROXINE [Concomitant]
  5. ACTONEL [Concomitant]
  6. ORENCIA [Suspect]
     Indication: RHEUMATOID ARTHRITIS
     Dosage: INTER-28NOV13?LAST INFUSION BEFORE FRACTURE TO HIP : 17/10/2013
     Route: 042
     Dates: start: 20081117

REACTIONS (2)
  - Femoral neck fracture [Recovering/Resolving]
  - Fall [Unknown]
